FAERS Safety Report 8149828-5 (Version None)
Quarter: 2012Q1

REPORT INFORMATION
  Report Type: 
  Country: None (occurrence: None)
  Receive Date: 20120218
  Receipt Date: 20111207
  Transmission Date: 20120608
  Serious: Yes (Other)
  Sender: FDA-Public Use
  Company Number: US-ALLERGAN-1115995US

PATIENT
  Age: 72 Year
  Sex: Female

DRUGS (1)
  1. BOTULINUM TOXIN TYPE A [Suspect]
     Indication: TORTICOLLIS
     Dosage: 130 UNITS, SINGLE
     Route: 030
     Dates: start: 20111104, end: 20111104

REACTIONS (1)
  - DYSPHAGIA [None]
